FAERS Safety Report 4726806-7 (Version None)
Quarter: 2005Q3

REPORT INFORMATION
  Report Type: 
  Country: None (occurrence: None)
  Receive Date: 20050725
  Receipt Date: 20050426
  Transmission Date: 20060218
  Serious: No
  Sender: FDA-Public Use
  Company Number: USA050496697

PATIENT
  Age: 9 Year
  Sex: Male
  Weight: 27 kg

DRUGS (1)
  1. STRATTERA [Suspect]
     Indication: ATTENTION DEFICIT/HYPERACTIVITY DISORDER
     Dosage: 40 MG DAY
     Dates: start: 20050301

REACTIONS (7)
  - DYSPNOEA [None]
  - FEELING HOT [None]
  - FLUSHING [None]
  - PALLOR [None]
  - SKIN DISCOLOURATION [None]
  - TACHYCARDIA [None]
  - VOMITING [None]
